FAERS Safety Report 4728041-5 (Version None)
Quarter: 2005Q3

REPORT INFORMATION
  Report Type: 
  Country: None (occurrence: None)
  Receive Date: 20050725
  Receipt Date: 20050520
  Transmission Date: 20060218
  Serious: No
  Sender: FDA-Public Use
  Company Number: USA050495331

PATIENT
  Age: 38 Year
  Sex: Male

DRUGS (4)
  1. STRATTERA [Suspect]
     Indication: ATTENTION DEFICIT/HYPERACTIVITY DISORDER
     Dosage: 80 MG DAY
     Dates: start: 20050401
  2. HYDROXYZINE [Concomitant]
  3. DEPAKOTE [Concomitant]
  4. SEROQUEL [Concomitant]

REACTIONS (4)
  - ASTHENOPIA [None]
  - DRUG INEFFECTIVE [None]
  - EYE PAIN [None]
  - IRRITABILITY [None]
